FAERS Safety Report 23060934 (Version 1)
Quarter: 2023Q4

REPORT INFORMATION
  Report Type: Spontaneous
  Country: BR (occurrence: BR)
  Receive Date: 20231012
  Receipt Date: 20231012
  Transmission Date: 20240110
  Serious: Yes (Other)
  Sender: FDA-Public Use
  Company Number: BR-ABBVIE-5445314

PATIENT
  Age: 65 Year
  Sex: Female

DRUGS (3)
  1. URSODIOL [Suspect]
     Active Substance: URSODIOL
     Indication: Primary biliary cholangitis
     Route: 065
  2. PREDNISONE [Concomitant]
     Active Substance: PREDNISONE
     Indication: Primary biliary cholangitis
  3. BEZAFIBRATE [Suspect]
     Active Substance: BEZAFIBRATE
     Indication: Primary biliary cholangitis
     Route: 065

REACTIONS (4)
  - Drug-induced liver injury [Unknown]
  - Off label use [Unknown]
  - Therapeutic product effect decreased [Unknown]
  - Pruritus [Recovered/Resolved]
